FAERS Safety Report 14827603 (Version 1)
Quarter: 2018Q2

REPORT INFORMATION
  Report Type: Spontaneous
  Country: US (occurrence: US)
  Receive Date: 20180430
  Receipt Date: 20180430
  Transmission Date: 20180711
  Serious: No
  Sender: FDA-Public Use
  Company Number: US-ABBVIE-17P-163-2015333-00

PATIENT
  Sex: Male
  Weight: 79.9 kg

DRUGS (4)
  1. ACCUPRIL (NON-ABBVIE) [Concomitant]
     Indication: HYPERTENSION
     Route: 065
  2. ANDROGEL [Suspect]
     Active Substance: TESTOSTERONE
     Indication: PRODUCT USED FOR UNKNOWN INDICATION
     Dosage: ALTERNATING EVERY OTHER DAY WITH ONE PACKET THEN 2 PACKETS
     Route: 061
     Dates: end: 201612
  3. ANDROGEL [Suspect]
     Active Substance: TESTOSTERONE
     Indication: BLOOD TESTOSTERONE DECREASED
     Dosage: 2 PUMPS DAILY
     Route: 061
     Dates: start: 201612
  4. LIPITOR [Concomitant]
     Active Substance: ATORVASTATIN CALCIUM
     Indication: BLOOD CHOLESTEROL INCREASED
     Route: 065

REACTIONS (3)
  - Blood testosterone decreased [Not Recovered/Not Resolved]
  - Blood testosterone increased [Recovered/Resolved]
  - Hypotonia [Not Recovered/Not Resolved]

NARRATIVE: CASE EVENT DATE: 2017
